FAERS Safety Report 4532932-8 (Version None)
Quarter: 2005Q1

REPORT INFORMATION
  Report Type: 
  Country: None (occurrence: None)
  Receive Date: 20041206
  Receipt Date: 20041012
  Transmission Date: 20050727
  Serious: No
  Sender: FDA-Public Use
  Company Number: USA041080892

PATIENT
  Sex: Female

DRUGS (1)
  1. CYMBALTA [Suspect]

REACTIONS (3)
  - ABNORMAL BEHAVIOUR [None]
  - DELIRIUM [None]
  - DIFFICULTY IN WALKING [None]
